FAERS Safety Report 22333502 (Version 1)
Quarter: 2023Q2

REPORT INFORMATION
  Report Type: Spontaneous
  Country: GB (occurrence: GB)
  Receive Date: 20230517
  Receipt Date: 20230517
  Transmission Date: 20230722
  Serious: Yes (Other)
  Sender: FDA-Public Use
  Company Number: GB-GLAXOSMITHKLINE-GB2023EME061853

PATIENT

DRUGS (3)
  1. LISDEXAMFETAMINE DIMESYLATE [Suspect]
     Active Substance: LISDEXAMFETAMINE DIMESYLATE
     Indication: Attention deficit hyperactivity disorder
     Dosage: UNK
     Route: 065
  2. BUPROPION [Suspect]
     Active Substance: BUPROPION
     Indication: Attention deficit hyperactivity disorder
     Dosage: 300 MILLIGRAM, QD
     Route: 065
  3. DIAZEPAM [Concomitant]
     Active Substance: DIAZEPAM
     Indication: Product used for unknown indication
     Dosage: 15 MILLIGRAM, QD
     Route: 065

REACTIONS (14)
  - Dystonia [Unknown]
  - Therapy cessation [Unknown]
  - Muscle contractions involuntary [Unknown]
  - Loss of personal independence in daily activities [Unknown]
  - Quality of life decreased [Unknown]
  - Muscle tightness [Unknown]
  - Myalgia [Unknown]
  - Muscular weakness [Unknown]
  - Hypoaesthesia [Unknown]
  - Akathisia [Unknown]
  - Contusion [Unknown]
  - Muscle spasms [Unknown]
  - Antidepressant discontinuation syndrome [Unknown]
  - Product availability issue [Unknown]
